FAERS Safety Report 25565683 (Version 1)
Quarter: 2025Q3

REPORT INFORMATION
  Report Type: Spontaneous
  Country: US (occurrence: US)
  Receive Date: 20250716
  Receipt Date: 20250716
  Transmission Date: 20251020
  Serious: No
  Sender: BRISTOL-MYERS SQUIBB COMPANY
  Company Number: US-BRISTOL-MYERS SQUIBB COMPANY-2025-099691

PATIENT

DRUGS (2)
  1. OPDIVO [Suspect]
     Active Substance: NIVOLUMAB
     Indication: Peritoneal neoplasm
  2. YERVOY [Suspect]
     Active Substance: IPILIMUMAB
     Indication: Peritoneal neoplasm

REACTIONS (1)
  - Off label use [Unknown]
